FAERS Safety Report 8110784-7 (Version None)
Quarter: 2012Q1

REPORT INFORMATION
  Report Type: 
  Country: None (occurrence: None)
  Receive Date: 20120203
  Receipt Date: 20111116
  Transmission Date: 20120608
  Serious: No
  Sender: FDA-Public Use
  Company Number: US-COVIDIEN/TYCO HEALTHCARE/MALLINCKRODT-T201102650

PATIENT
  Sex: Female

DRUGS (2)
  1. PROPOXYPHENE HCL AND ACETAMINOPHEN [Suspect]
     Dosage: UNK
     Dates: start: 20050101, end: 20070703
  2. PROPOXYPHENE HYDROCHLORIDE [Suspect]
     Dosage: UNK
     Dates: start: 19970801, end: 20090101

REACTIONS (2)
  - HEART RATE IRREGULAR [None]
  - HEART VALVE INCOMPETENCE [None]
